FAERS Safety Report 20670769 (Version 4)
Quarter: 2025Q1

REPORT INFORMATION
  Report Type: Spontaneous
  Country: US (occurrence: US)
  Receive Date: 20220404
  Receipt Date: 20250312
  Transmission Date: 20250409
  Serious: No
  Sender: PFIZER
  Company Number: US-PFIZER INC-202101146157

PATIENT
  Age: 57 Year
  Sex: Female

DRUGS (2)
  1. IBRANCE [Suspect]
     Active Substance: PALBOCICLIB
     Dates: start: 20200910
  2. IBRANCE [Suspect]
     Active Substance: PALBOCICLIB
     Dates: start: 20220103

REACTIONS (4)
  - Neutrophil count decreased [Unknown]
  - Fatigue [Unknown]
  - Full blood count decreased [Unknown]
  - Nail deformation [Unknown]
